FAERS Safety Report 9470822 (Version 1)
Quarter: 2013Q3

REPORT INFORMATION
  Report Type: Spontaneous
  Country: US (occurrence: None)
  Receive Date: 20130820
  Receipt Date: 20130820
  Transmission Date: 20140515
  Serious: Yes (Hospitalization)
  Sender: FDA-Public Use
  Company Number: None

PATIENT
  Age: 48 None
  Sex: Female

DRUGS (8)
  1. VANCOMYCIN [Suspect]
     Indication: SNAKE BITE
     Dosage: INTRAVENOUS 2 BAGS INTRAVENOUS
     Route: 042
     Dates: start: 002707, end: 002807
  2. XANAX [Concomitant]
  3. LYRICA [Concomitant]
  4. SEROQUEL [Concomitant]
  5. BENADRYL [Concomitant]
  6. VANCOMYCIN [Concomitant]
  7. ONE A DAY WOMEN^S VITAMIN [Concomitant]
  8. VITAMIN D [Concomitant]

REACTIONS (10)
  - Skin irritation [None]
  - Pruritus [None]
  - Burning sensation [None]
  - Swelling [None]
  - Myalgia [None]
  - Asthenia [None]
  - Skin exfoliation [None]
  - Abasia [None]
  - Dysuria [None]
  - Renal pain [None]
